FAERS Safety Report 21389376 (Version 2)
Quarter: 2022Q4

REPORT INFORMATION
  Report Type: Spontaneous
  Country: JP (occurrence: JP)
  Receive Date: 20220929
  Receipt Date: 20221006
  Transmission Date: 20230113
  Serious: Yes (Other)
  Sender: FDA-Public Use
  Company Number: JP-PFIZER INC-PV202200070732

PATIENT

DRUGS (1)
  1. ENBREL [Suspect]
     Active Substance: ETANERCEPT
     Indication: Product used for unknown indication
     Dosage: 1 ML
     Route: 058

REACTIONS (2)
  - Rectal cancer [Not Recovered/Not Resolved]
  - Metastases to lung [Unknown]
